FAERS Safety Report 25863829 (Version 1)
Quarter: 2025Q3

REPORT INFORMATION
  Report Type: Spontaneous
  Country: US (occurrence: US)
  Receive Date: 20250930
  Receipt Date: 20250930
  Transmission Date: 20251021
  Serious: Yes (Death, Hospitalization, Other)
  Sender: AAVIS PHARMACEUTICALS
  Company Number: US-AVS-000226

PATIENT
  Age: 43 Year
  Sex: Male

DRUGS (3)
  1. HYDROXYCHLOROQUINE [Suspect]
     Active Substance: HYDROXYCHLOROQUINE
     Indication: Product used for unknown indication
     Route: 065
  2. TRAZODONE [Suspect]
     Active Substance: TRAZODONE HYDROCHLORIDE
     Indication: Product used for unknown indication
     Route: 065
  3. METFORMIN [Suspect]
     Active Substance: METFORMIN HYDROCHLORIDE
     Indication: Product used for unknown indication
     Route: 065

REACTIONS (8)
  - Intentional overdose [Unknown]
  - Hypotension [Unknown]
  - Multiple organ dysfunction syndrome [Fatal]
  - Pneumonia aspiration [Unknown]
  - Acute respiratory failure [Unknown]
  - Hypokalaemia [Recovered/Resolved]
  - Metabolic acidosis [Recovering/Resolving]
  - Mental status changes [Unknown]
